APPROVED DRUG PRODUCT: OMEPRAZOLE MAGNESIUM
Active Ingredient: OMEPRAZOLE MAGNESIUM
Strength: EQ 20MG BASE
Dosage Form/Route: TABLET, DELAYED RELEASE;ORAL
Application: A218829 | Product #001
Applicant: MARKSANS PHARMA LTD
Approved: Aug 7, 2025 | RLD: No | RS: No | Type: OTC